FAERS Safety Report 23645952 (Version 1)
Quarter: 2024Q1

REPORT INFORMATION
  Report Type: Report from Study
  Country: NL (occurrence: NL)
  Receive Date: 20240319
  Receipt Date: 20240319
  Transmission Date: 20240410
  Serious: Yes (Other)
  Sender: FDA-Public Use
  Company Number: NL-UCBSA-2024006774

PATIENT
  Sex: Male
  Weight: 22.5 kg

DRUGS (2)
  1. FINTEPLA [Suspect]
     Active Substance: FENFLURAMINE
     Indication: Lennox-Gastaut syndrome
     Dosage: 4 MILLILITER, 2X/DAY (BID)
  2. FINTEPLA [Suspect]
     Active Substance: FENFLURAMINE
     Dosage: 3.6 MILLILITER, 2X/DAY (BID)

REACTIONS (2)
  - Epilepsy [Not Recovered/Not Resolved]
  - Weight decreased [Not Recovered/Not Resolved]
